FAERS Safety Report 9904540 (Version 1)
Quarter: 2014Q1

REPORT INFORMATION
  Report Type: Spontaneous
  Country: US (occurrence: US)
  Receive Date: 20140218
  Receipt Date: 20140218
  Transmission Date: 20141002
  Serious: Yes (Disabling, Other)
  Sender: FDA-Public Use
  Company Number: US-SA-2014SA018574

PATIENT
  Age: 53 Year
  Sex: Male

DRUGS (2)
  1. ENOXAPARIN SODIUM - WINTHROP [Suspect]
     Route: 065
     Dates: start: 20140113
  2. ENOXAPARIN SODIUM - WINTHROP [Suspect]
     Dosage: DOSE:100 MILLIGRAM(S)/MILLILITRE
     Route: 051
     Dates: start: 20140207

REACTIONS (6)
  - Atrial fibrillation [Unknown]
  - Walking aid user [Unknown]
  - Fear [Unknown]
  - Injection site bruising [Unknown]
  - Injection site nodule [Unknown]
  - Injection site pain [Unknown]
